FAERS Safety Report 5165842-6 (Version None)
Quarter: 2006Q4

REPORT INFORMATION
  Report Type: 
  Country: None (occurrence: None)
  Receive Date: 20061128
  Receipt Date: 20061113
  Transmission Date: 20070319
  Serious: Yes (Hospitalization)
  Sender: FDA-Public Use
  Company Number: 15185

PATIENT
  Age: 2 Year
  Sex: Male
  Weight: 16 kg

DRUGS (2)
  1. CARBOPLATIN [Suspect]
     Indication: GLIOMA
     Dosage: 300 MG PER_CYCLE IV
     Route: 042
     Dates: start: 20050616, end: 20061017
  2. ONCOVIN [Concomitant]

REACTIONS (4)
  - COUGH [None]
  - EYELID OEDEMA [None]
  - HYPERSENSITIVITY [None]
  - URTICARIA [None]
